FAERS Safety Report 6801945-5 (Version None)
Quarter: 2010Q2

REPORT INFORMATION
  Report Type: 
  Country: None (occurrence: None)
  Receive Date: 20100629
  Receipt Date: 20100617
  Transmission Date: 20101027
  Serious: Yes (Other)
  Sender: FDA-Public Use
  Company Number: TW-PFIZER INC-2010075806

PATIENT
  Age: 54 Year
  Sex: Female

DRUGS (3)
  1. EPIRUBICIN HYDROCHLORIDE [Suspect]
     Indication: BREAST CANCER METASTATIC
     Dosage: 90 MG/M2, ONCE WEEKLY
     Route: 042
  2. FLUOROURACIL [Suspect]
     Indication: BREAST CANCER METASTATIC
     Dosage: 600 MG/M2, ONCE WEEKLY
     Route: 042
  3. CYCLOPHOSPHAMIDE [Suspect]
     Indication: BREAST CANCER METASTATIC
     Dosage: 600 MG/M2, ONCE WEEKLY
     Route: 042

REACTIONS (2)
  - SKIN FIBROSIS [None]
  - SKIN HYPERPIGMENTATION [None]
